FAERS Safety Report 23802837 (Version 1)
Quarter: 2024Q2

REPORT INFORMATION
  Report Type: Spontaneous
  Country: AU (occurrence: AU)
  Receive Date: 20240501
  Receipt Date: 20240501
  Transmission Date: 20240716
  Serious: Yes (Other)
  Sender: FDA-Public Use
  Company Number: AU-AUS-LIT/AUS/24/0006367

PATIENT
  Age: 83 Year
  Sex: Female

DRUGS (1)
  1. IMATINIB [Suspect]
     Active Substance: IMATINIB
     Indication: Gastrointestinal stromal tumour

REACTIONS (3)
  - Lichenoid keratosis [Recovered/Resolved]
  - Drug intolerance [Unknown]
  - Superficial inflammatory dermatosis [Unknown]
